FAERS Safety Report 7773830-6 (Version None)
Quarter: 2011Q3

REPORT INFORMATION
  Report Type: 
  Country: None (occurrence: None)
  Receive Date: 20110923
  Receipt Date: 20110913
  Transmission Date: 20111222
  Serious: Yes (Hospitalization)
  Sender: FDA-Public Use
  Company Number: US-JNJFOC-20110811620

PATIENT
  Sex: Female

DRUGS (4)
  1. REMICADE [Suspect]
     Indication: CROHN'S DISEASE
     Route: 042
     Dates: start: 20090720, end: 20110602
  2. MERCAPTOPURINE [Concomitant]
     Indication: CROHN'S DISEASE
     Route: 065
     Dates: start: 20090714, end: 20110811
  3. PREDNISONE [Concomitant]
     Indication: CROHN'S DISEASE
     Route: 065
     Dates: start: 20110629
  4. APRISO [Concomitant]
     Indication: CROHN'S DISEASE
     Route: 065
     Dates: start: 20090624, end: 20110811

REACTIONS (3)
  - DRUG INEFFECTIVE [None]
  - ANORECTAL DISORDER [None]
  - IRON DEFICIENCY ANAEMIA [None]
